FAERS Safety Report 18307566 (Version 2)
Quarter: 2021Q4

REPORT INFORMATION
  Report Type: Spontaneous
  Country: US (occurrence: US)
  Receive Date: 20200924
  Receipt Date: 20211116
  Transmission Date: 20220303
  Serious: Yes (Hospitalization)
  Sender: FDA-Public Use
  Company Number: US-PFIZER INC-2020367592

PATIENT
  Age: 59 Year
  Sex: Male

DRUGS (2)
  1. INLYTA [Suspect]
     Active Substance: AXITINIB
     Dosage: 5 MG
     Dates: start: 20190923
  2. INLYTA [Suspect]
     Active Substance: AXITINIB
     Dosage: 5MG
     Dates: start: 20190607

REACTIONS (5)
  - Injury [Unknown]
  - Myalgia [Unknown]
  - Hypertension [Unknown]
  - Fatigue [Unknown]
  - Off label use [Unknown]
